FAERS Safety Report 12863786 (Version 1)
Quarter: 2016Q4

REPORT INFORMATION
  Report Type: Spontaneous
  Country: HR (occurrence: HR)
  Receive Date: 20161019
  Receipt Date: 20161019
  Transmission Date: 20170207
  Serious: Yes (Other)
  Sender: FDA-Public Use
  Company Number: PHHY2016HR140417

PATIENT
  Age: 33 Year
  Sex: Female
  Weight: 55 kg

DRUGS (1)
  1. KLIMICIN [Suspect]
     Active Substance: CLINDAMYCIN PHOSPHATE
     Indication: UPPER RESPIRATORY TRACT INFECTION
     Dosage: 300 MG; 3 X 1
     Route: 048

REACTIONS (1)
  - Rectal haemorrhage [Recovered/Resolved]

NARRATIVE: CASE EVENT DATE: 20160215
